FAERS Safety Report 15862260 (Version 1)
Quarter: 2019Q1

REPORT INFORMATION
  Report Type: Spontaneous
  Country: US (occurrence: US)
  Receive Date: 20190124
  Receipt Date: 20190124
  Transmission Date: 20190417
  Serious: No
  Sender: FDA-Public Use
  Company Number: US-009507513-1901USA003235

PATIENT
  Sex: Female
  Weight: 68.03 kg

DRUGS (2)
  1. METRONIDAZOLE. [Suspect]
     Active Substance: METRONIDAZOLE
  2. NEXPLANON [Suspect]
     Active Substance: ETONOGESTREL
     Indication: CONTRACEPTION
     Dosage: 1 IMPLANT, IN THE LEFT ARM, 3 YEARS
     Route: 059
     Dates: start: 20180430

REACTIONS (3)
  - Menstruation irregular [Unknown]
  - Stomatitis [Unknown]
  - Drug hypersensitivity [Unknown]
